FAERS Safety Report 8273939-7 (Version None)
Quarter: 2012Q2

REPORT INFORMATION
  Report Type: 
  Country: None (occurrence: None)
  Receive Date: 20120411
  Receipt Date: 20120409
  Transmission Date: 20120825
  Serious: No
  Sender: FDA-Public Use
  Company Number: US-B.I. PHARMACEUTICALS,INC./RIDGEFIELD-2011-BP-09011BP

PATIENT
  Sex: Male

DRUGS (8)
  1. CARDIZEM [Suspect]
     Indication: ATRIAL FIBRILLATION
     Dates: start: 20110201
  2. LISINOPRIL [Concomitant]
     Indication: HYPERTENSION
  3. ASCORBIC ACID [Concomitant]
  4. PRADAXA [Suspect]
     Indication: ATRIAL FIBRILLATION
     Dosage: 300 MG
     Route: 048
     Dates: start: 20110210
  5. DILTIAZEM HCL [Concomitant]
     Indication: HEART RATE INCREASED
  6. ZYRTEC [Concomitant]
     Indication: MULTIPLE ALLERGIES
  7. ACIPHEX [Concomitant]
     Indication: GASTROOESOPHAGEAL REFLUX DISEASE
     Dates: start: 20030101
  8. XALATAN [Concomitant]
     Indication: GLAUCOMA

REACTIONS (4)
  - GASTROINTESTINAL PAIN [None]
  - PROSTATIC SPECIFIC ANTIGEN INCREASED [None]
  - HAEMATOCHEZIA [None]
  - DYSURIA [None]
